FAERS Safety Report 12154897 (Version 1)
Quarter: 2016Q1

REPORT INFORMATION
  Report Type: Report from Study
  Country: AR (occurrence: AR)
  Receive Date: 20160307
  Receipt Date: 20160307
  Transmission Date: 20160526
  Serious: Yes (Hospitalization)
  Sender: FDA-Public Use
  Company Number: PHHY2016AR029200

PATIENT
  Sex: Female

DRUGS (1)
  1. EXFORGE [Suspect]
     Active Substance: AMLODIPINE BESYLATE\VALSARTAN
     Indication: BLOOD PRESSURE ABNORMAL
     Dosage: 1 DF (160 OF VALSARTAN, 12.5 OF AMLODIPINE, 5 OF HYDROCHLOROTHIAZIDE) QD
     Route: 065

REACTIONS (2)
  - Peau d^orange [Recovered/Resolved]
  - Infection [Recovered/Resolved]
